FAERS Safety Report 5331870-0 (Version None)
Quarter: 2007Q2

REPORT INFORMATION
  Report Type: 
  Country: None (occurrence: None)
  Receive Date: 20070523
  Receipt Date: 20070517
  Transmission Date: 20071010
  Serious: Yes (Hospitalization)
  Sender: FDA-Public Use
  Company Number: CAWYE675117MAY07

PATIENT
  Sex: Female
  Weight: 94 kg

DRUGS (11)
  1. TACROLIMUS [Suspect]
     Indication: RENAL TRANSPLANT
     Route: 048
     Dates: start: 20060716
  2. CELLCEPT [Suspect]
     Indication: RENAL TRANSPLANT
     Route: 048
     Dates: start: 20060716, end: 20061001
  3. CELLCEPT [Suspect]
     Route: 048
     Dates: start: 20061001
  4. METOPROLOL SUCCINATE [Concomitant]
     Indication: HYPERTENSION
     Route: 048
     Dates: start: 20060905
  5. AMLODIPINE [Concomitant]
     Indication: HYPERTENSION
     Route: 048
     Dates: start: 20060905
  6. PANTOPRAZOLE SODIUM [Concomitant]
     Indication: PROPHYLAXIS
     Route: 048
     Dates: start: 20060716
  7. NOVORAPID [Concomitant]
     Indication: DIABETES MELLITUS
     Dosage: 34 UNITS
     Route: 058
     Dates: start: 20060912
  8. HUMULIN N [Concomitant]
     Indication: DIABETES MELLITUS
     Dosage: 12 UNITS
     Route: 058
     Dates: start: 20060912
  9. PREDNISONE TAB [Suspect]
     Indication: RENAL TRANSPLANT
     Route: 048
     Dates: start: 20060905
  10. FUROSEMIDE [Concomitant]
     Indication: OEDEMA PERIPHERAL
     Route: 048
  11. ATORVASTATIN CALCIUM [Concomitant]
     Indication: HYPERLIPIDAEMIA
     Route: 048
     Dates: start: 20040101

REACTIONS (5)
  - ARRHYTHMIA [None]
  - HERPES ZOSTER [None]
  - IMPLANT SITE EFFUSION [None]
  - STREPTOCOCCAL INFECTION [None]
  - URINARY TRACT INFECTION BACTERIAL [None]
